FAERS Safety Report 4347725-4 (Version None)
Quarter: 2004Q2

REPORT INFORMATION
  Report Type: 
  Country: None (occurrence: None)
  Receive Date: 20040422
  Receipt Date: 20040406
  Transmission Date: 20050107
  Serious: Yes (Other)
  Sender: FDA-Public Use
  Company Number: USA040464231

PATIENT
  Sex: Male

DRUGS (3)
  1. STRATTERA [Suspect]
  2. SEROQUEL [Concomitant]
  3. ABILIFY [Concomitant]

REACTIONS (1)
  - NEUROLEPTIC MALIGNANT SYNDROME [None]
